FAERS Safety Report 8022286-7 (Version None)
Quarter: 2011Q4

REPORT INFORMATION
  Report Type: 
  Country: None (occurrence: None)
  Receive Date: 20111229
  Receipt Date: 20111222
  Transmission Date: 20120403
  Serious: Yes (Life-Threatening)
  Sender: FDA-Public Use
  Company Number: AUR-APL-2011-06273

PATIENT
  Age: 36 Year
  Sex: Female

DRUGS (1)
  1. AMOXICILLIN [Suspect]
     Indication: OROPHARYNGEAL PAIN
     Dosage: (2 GM,1 D),ORAL
     Route: 048
     Dates: start: 20111206, end: 20111206

REACTIONS (4)
  - HYPERAEMIA [None]
  - PRURITUS [None]
  - BLOOD GLUCOSE INCREASED [None]
  - DYSPNOEA [None]
